FAERS Safety Report 5193773-4 (Version None)
Quarter: 2006Q4

REPORT INFORMATION
  Report Type: 
  Country: None (occurrence: None)
  Receive Date: 20061228
  Receipt Date: 20061221
  Transmission Date: 20070319
  Serious: Yes (Other)
  Sender: FDA-Public Use
  Company Number: DE-GLAXOSMITHKLINE-D0051871A

PATIENT
  Age: 17 Year
  Sex: Female

DRUGS (4)
  1. VIANI [Suspect]
     Route: 065
  2. VIANI FORTE [Suspect]
     Route: 065
  3. FLUTIDE [Suspect]
     Route: 065
  4. SEREVENT [Suspect]
     Route: 065

REACTIONS (5)
  - DISORIENTATION [None]
  - DRUG INEFFECTIVE [None]
  - HEART RATE INCREASED [None]
  - MEMORY IMPAIRMENT [None]
  - NERVOUS SYSTEM DISORDER [None]
